FAERS Safety Report 19783715 (Version 1)
Quarter: 2021Q3

REPORT INFORMATION
  Report Type: Spontaneous
  Country: TR (occurrence: TR)
  Receive Date: 20210902
  Receipt Date: 20210902
  Transmission Date: 20211014
  Serious: Yes (Hospitalization)
  Sender: FDA-Public Use
  Company Number: TR-LUPIN PHARMACEUTICALS INC.-2021-16316

PATIENT
  Age: 58 Year
  Sex: Male

DRUGS (11)
  1. IDARUBICIN [Concomitant]
     Active Substance: IDARUBICIN
     Dosage: 10 MILLIGRAM/SQ. METER? AS PER THE FLAG?IDA REGIMEN
     Route: 042
  2. POSACONAZOLE [Concomitant]
     Active Substance: POSACONAZOLE
     Indication: FUNGAL INFECTION
     Dosage: 600 MILLIGRAM, QD
     Route: 048
  3. AMPHOTERICIN B, LIPOSOME [Suspect]
     Active Substance: AMPHOTERICIN B
     Indication: SYSTEMIC MYCOSIS
     Dosage: UNK
     Route: 065
  4. IDARUBICIN [Concomitant]
     Active Substance: IDARUBICIN
     Indication: ACUTE MYELOID LEUKAEMIA
     Dosage: 12 MILLIGRAM/SQ. METER?AS PER THE 7+3 TREATMENT PROTOCOL
     Route: 042
  5. VORICONAZOLE. [Suspect]
     Active Substance: VORICONAZOLE
     Indication: SYSTEMIC MYCOSIS
     Dosage: UNK
     Route: 042
  6. CYTARABINE. [Concomitant]
     Active Substance: CYTARABINE
     Indication: ACUTE MYELOID LEUKAEMIA
     Dosage: 100 MILLIGRAM/SQ. METER?AS PER THE 7+3 TREATMENT PROTOCOL
     Route: 042
  7. CYTARABINE. [Concomitant]
     Active Substance: CYTARABINE
     Dosage: 2000 MILLIGRAM/SQ. METER AS PER THE FLAG?IDA REGIMEN
     Route: 042
  8. CLOFARABINE. [Concomitant]
     Active Substance: CLOFARABINE
     Indication: ACUTE MYELOID LEUKAEMIA
     Dosage: 20 MILLIGRAM/SQ. METER AS PER THE FLAG?IDA REGIMEN
     Route: 042
  9. CYTARABINE. [Concomitant]
     Active Substance: CYTARABINE
     Dosage: 2 GRAM PER SQUARE METRE AS PER THE FLAG?IDA REGIMEN
     Route: 042
  10. VORICONAZOLE. [Suspect]
     Active Substance: VORICONAZOLE
     Indication: CONJUNCTIVITIS
     Dosage: UNK?EYE DROPS
     Route: 047
  11. FLUDARABINE [Concomitant]
     Active Substance: FLUDARABINE PHOSPHATE
     Indication: ACUTE MYELOID LEUKAEMIA
     Dosage: 30 MILLIGRAM/SQ. METER AS PER THE FLAG?IDA REGIMEN
     Route: 042

REACTIONS (1)
  - Drug ineffective [Unknown]
